FAERS Safety Report 8780752 (Version 2)
Quarter: 2012Q4

REPORT INFORMATION
  Report Type: 
  Country: US (occurrence: US)
  Receive Date: 20120913
  Receipt Date: 20121108
  Transmission Date: 20130627
  Serious: No
  Sender: FDA-Public Use
  Company Number: US-009507513-1208USA006668

PATIENT
  Age: 63 Year
  Sex: Male
  Weight: 66.9 kg

DRUGS (3)
  1. PEGINTRON [Suspect]
     Dosage: 96 Microgram,qw
     Route: 058
     Dates: start: 20120628
  2. VICTRELIS [Suspect]
     Indication: HEPATITIS C
     Dosage: 800 mg, tid
     Route: 048
     Dates: start: 20120813
  3. RIBASPHERE [Suspect]
     Dosage: 400 mg, bid
     Route: 048

REACTIONS (4)
  - Anger [Recovering/Resolving]
  - Anxiety [Recovering/Resolving]
  - Myalgia [Unknown]
  - Insomnia [Unknown]
